FAERS Safety Report 6867936-3 (Version None)
Quarter: 2010Q3

REPORT INFORMATION
  Report Type: 
  Country: None (occurrence: None)
  Receive Date: 20100722
  Receipt Date: 20100722
  Transmission Date: 20110219
  Serious: Yes (Hospitalization)
  Sender: FDA-Public Use
  Company Number: None

PATIENT
  Age: 61 Year
  Sex: Male
  Weight: 113.6 kg

DRUGS (1)
  1. JANUMET [Suspect]
     Indication: DIABETES MELLITUS
     Dosage: 1 TABLET 2X/DAY ORAL 047
     Route: 048
     Dates: start: 20080101, end: 20100101

REACTIONS (3)
  - ANGIOEDEMA [None]
  - BALANCE DISORDER [None]
  - FALL [None]
